FAERS Safety Report 4465623-2 (Version None)
Quarter: 2004Q4

REPORT INFORMATION
  Report Type: 
  Country: None (occurrence: None)
  Receive Date: 20041004
  Receipt Date: 20040916
  Transmission Date: 20050328
  Serious: Yes (Other)
  Sender: FDA-Public Use
  Company Number: PHBS2004JP12413

PATIENT
  Age: 50 Year
  Sex: Female
  Weight: 49 kg

DRUGS (4)
  1. DIOVAN [Suspect]
     Indication: HYPERTENSION
     Dosage: 80 MG, QD
     Route: 048
     Dates: start: 20040716, end: 20040801
  2. NATRIX [Concomitant]
     Indication: HYPERTENSION
     Dosage: 1 MG, UNK
     Route: 048
     Dates: start: 20040716, end: 20040722
  3. FERROMIA [Concomitant]
     Indication: IRON DEFICIENCY ANAEMIA
     Dosage: 50 MG, QW
     Route: 048
     Dates: start: 20040517, end: 20040801
  4. HERBAL EXTRACTS NOS [Concomitant]
     Dates: start: 20040501

REACTIONS (7)
  - CONJUNCTIVITIS [None]
  - IMPETIGO [None]
  - MAMMOGRAM ABNORMAL [None]
  - OEDEMA PERIPHERAL [None]
  - SKIN LESION [None]
  - STEVENS-JOHNSON SYNDROME [None]
  - VISUAL FIELD DEFECT [None]
